FAERS Safety Report 5695802-8 (Version None)
Quarter: 2008Q2

REPORT INFORMATION
  Report Type: 
  Country: None (occurrence: None)
  Receive Date: 20080407
  Receipt Date: 20080327
  Transmission Date: 20081010
  Serious: Yes (Other)
  Sender: FDA-Public Use
  Company Number: US-ROCHE-555659

PATIENT
  Sex: Female
  Weight: 52.2 kg

DRUGS (4)
  1. BONIVA [Suspect]
     Indication: OSTEOPOROSIS
     Route: 065
     Dates: start: 20080319, end: 20080319
  2. MORPHINE [Concomitant]
  3. OXYCODONE HCL [Concomitant]
  4. UNSPECIFIED MEDICATIONS [Concomitant]

REACTIONS (9)
  - CHEST PAIN [None]
  - CONDITION AGGRAVATED [None]
  - DISTURBANCE IN ATTENTION [None]
  - EYE PAIN [None]
  - FALL [None]
  - HYPOAESTHESIA [None]
  - NAUSEA [None]
  - RENAL FAILURE [None]
  - SPEECH DISORDER [None]
